FAERS Safety Report 23625862 (Version 6)
Quarter: 2024Q4

REPORT INFORMATION
  Report Type: Spontaneous
  Country: US (occurrence: US)
  Receive Date: 20240313
  Receipt Date: 20241212
  Transmission Date: 20250114
  Serious: Yes (Other)
  Sender: CSL BEHRING
  Company Number: US-BEH-2024169317

PATIENT
  Age: 74 Year
  Sex: Female

DRUGS (18)
  1. HIZENTRA [Suspect]
     Active Substance: HUMAN IMMUNOGLOBULIN G
     Indication: Polyarthritis
     Dosage: 14 GRAM, QOW
     Route: 058
     Dates: start: 20210117
  2. HIZENTRA [Suspect]
     Active Substance: HUMAN IMMUNOGLOBULIN G
     Dosage: 14 G, QOW
     Route: 058
  3. HIZENTRA [Suspect]
     Active Substance: HUMAN IMMUNOGLOBULIN G
     Dosage: 14 G, QOW
     Route: 058
     Dates: start: 20241004
  4. HIZENTRA [Suspect]
     Active Substance: HUMAN IMMUNOGLOBULIN G
     Dosage: 14 GRAM, QOW
     Route: 058
     Dates: start: 202101
  5. OXYCODONE HYDROCHLORIDE [Concomitant]
     Active Substance: OXYCODONE HYDROCHLORIDE
     Dosage: 5 MG
  6. ASPIRIN [Concomitant]
     Active Substance: ASPIRIN
     Dosage: 325 MG
  7. BIOTIN [Concomitant]
     Active Substance: BIOTIN
     Dosage: 10000 MCG
  8. CALCIUM [Concomitant]
     Active Substance: CALCIUM
     Dosage: 500 MG
  9. CEPHALEXIN [Concomitant]
     Active Substance: CEPHALEXIN
     Dosage: 250 MG
  10. CLONAZEPAM [Concomitant]
     Active Substance: CLONAZEPAM
     Dosage: 2 MG
  11. LAMOTRIGINE [Concomitant]
     Active Substance: LAMOTRIGINE
     Dosage: 150 MG
  12. LAMOTRIGINE [Concomitant]
     Active Substance: LAMOTRIGINE
     Dosage: 50 MG
  13. METHENAMINE [Concomitant]
     Active Substance: METHENAMINE
     Dosage: 0.5 G
  14. VITAMINS NOS [Concomitant]
     Active Substance: VITAMINS
  15. OMEPRAZOLE [Concomitant]
     Active Substance: OMEPRAZOLE
     Dosage: 20 MG
  16. PREDNISONE [Concomitant]
     Active Substance: PREDNISONE
     Dosage: 5 MG
  17. VITAMIN D3 [Concomitant]
     Active Substance: CHOLECALCIFEROL
     Dosage: 25 MCG
  18. XANAX [Concomitant]
     Active Substance: ALPRAZOLAM
     Dosage: 0.5 MG

REACTIONS (27)
  - Hip fracture [Unknown]
  - Off label use [Unknown]
  - Fall [Unknown]
  - Limb asymmetry [Unknown]
  - Balance disorder [Unknown]
  - Gait inability [Unknown]
  - Anxiety [Unknown]
  - Depressed mood [Unknown]
  - Somnolence [Recovered/Resolved]
  - Feeling cold [Recovered/Resolved]
  - Therapy interrupted [Unknown]
  - Feeling cold [Recovered/Resolved]
  - Incorrect drug administration rate [Recovered/Resolved]
  - Somnolence [Recovered/Resolved]
  - Incorrect drug administration rate [Recovered/Resolved]
  - Headache [Recovered/Resolved]
  - Incorrect drug administration rate [Recovered/Resolved]
  - Muscular weakness [Recovered/Resolved]
  - Restlessness [Unknown]
  - Dysuria [Unknown]
  - Insomnia [Unknown]
  - COVID-19 [Unknown]
  - Pain [Unknown]
  - Pruritus [Not Recovered/Not Resolved]
  - Nausea [Recovered/Resolved]
  - Pyrexia [Recovered/Resolved]
  - Headache [Recovered/Resolved]

NARRATIVE: CASE EVENT DATE: 20230901
